FAERS Safety Report 18429867 (Version 2)
Quarter: 2020Q4

REPORT INFORMATION
  Report Type: Spontaneous
  Country: JP (occurrence: JP)
  Receive Date: 20201026
  Receipt Date: 20201027
  Transmission Date: 20210114
  Serious: Yes (Death, Other)
  Sender: FDA-Public Use
  Company Number: JP-TAKEDA-2020TUS043901

PATIENT
  Age: 19 Year
  Sex: Male

DRUGS (8)
  1. CYTARABINE. [Concomitant]
     Active Substance: CYTARABINE
     Indication: ACUTE LYMPHOCYTIC LEUKAEMIA
     Dosage: UNK
     Route: 065
  2. DEXAMETHASONE. [Concomitant]
     Active Substance: DEXAMETHASONE
     Dosage: UNK
     Route: 065
  3. METHOTREXATE. [Concomitant]
     Active Substance: METHOTREXATE
     Indication: ACUTE LYMPHOCYTIC LEUKAEMIA
     Dosage: UNK
     Route: 065
  4. DEXAMETHASONE. [Concomitant]
     Active Substance: DEXAMETHASONE
     Indication: ACUTE LYMPHOCYTIC LEUKAEMIA
     Dosage: UNK
     Route: 065
  5. ICLUSIG [Suspect]
     Active Substance: PONATINIB
     Dosage: 45 MILLIGRAM, QD
     Route: 048
  6. ETANERCEPT [Concomitant]
     Active Substance: ETANERCEPT
     Indication: PRODUCT USED FOR UNKNOWN INDICATION
     Dosage: UNK
     Route: 065
  7. ICLUSIG [Suspect]
     Active Substance: PONATINIB
     Indication: ACUTE LYMPHOCYTIC LEUKAEMIA
     Dosage: 30 MILLIGRAM, QD
     Route: 048
  8. ICLUSIG [Suspect]
     Active Substance: PONATINIB
     Dosage: 15 MILLIGRAM, QD
     Route: 048

REACTIONS (3)
  - Idiopathic pneumonia syndrome [Fatal]
  - Pneumonia [Fatal]
  - Febrile neutropenia [Unknown]
